FAERS Safety Report 6841421-7 (Version None)
Quarter: 2010Q3

REPORT INFORMATION
  Report Type: 
  Country: None (occurrence: None)
  Receive Date: 20100714
  Receipt Date: 20070705
  Transmission Date: 20110219
  Serious: No
  Sender: FDA-Public Use
  Company Number: US-PFIZER INC-2007056245

PATIENT
  Age: 54 Year
  Sex: Male
  Weight: 73.6 kg

DRUGS (4)
  1. CHANTIX [Suspect]
     Indication: SMOKING CESSATION THERAPY
     Dates: start: 20070701
  2. ALL OTHER THERAPEUTIC PRODUCTS [Concomitant]
     Indication: HIV INFECTION
  3. ANTIHYPERTENSIVES [Concomitant]
  4. VITAMINS [Concomitant]

REACTIONS (2)
  - EPISTAXIS [None]
  - HEADACHE [None]
